FAERS Safety Report 16483465 (Version 1)
Quarter: 2019Q2

REPORT INFORMATION
  Report Type: Spontaneous
  Country: GR (occurrence: GR)
  Receive Date: 20190627
  Receipt Date: 20190627
  Transmission Date: 20190711
  Serious: Yes (Other)
  Sender: FDA-Public Use
  Company Number: GR-009507513-1906GRC006592

PATIENT
  Age: 66 Year
  Sex: Male

DRUGS (4)
  1. ATORVASTATIN [Suspect]
     Active Substance: ATORVASTATIN
     Indication: HYPERLIPIDAEMIA
     Dosage: 40 MILLIGRAM, UNK
     Route: 065
  2. EZETIMIBE. [Concomitant]
     Active Substance: EZETIMIBE
     Indication: HYPERLIPIDAEMIA
     Dosage: 10 MILLIGRAM, UNK
     Route: 065
  3. EZETIMIBE AND SIMVASTATIN [Suspect]
     Active Substance: EZETIMIBE\SIMVASTATIN
     Indication: HYPERLIPIDAEMIA
     Dosage: SIMVASTAIN 10MG/EZETIMIBE 10 MG
     Route: 065
  4. METHYLPREDNISOLONE. [Suspect]
     Active Substance: METHYLPREDNISOLONE
     Indication: MYOSITIS
     Dosage: 1 GRAM, MONTHLY
     Route: 042

REACTIONS (6)
  - Atrophy [Recovering/Resolving]
  - Immune-mediated necrotising myopathy [Recovering/Resolving]
  - Necrotising myositis [Not Recovered/Not Resolved]
  - Myositis [Recovering/Resolving]
  - Myopathy [Recovering/Resolving]
  - Muscular weakness [Recovering/Resolving]
